FAERS Safety Report 5696560-3 (Version None)
Quarter: 2008Q2

REPORT INFORMATION
  Report Type: 
  Country: None (occurrence: None)
  Receive Date: 20080404
  Receipt Date: 20080404
  Transmission Date: 20081010
  Serious: Yes (Other)
  Sender: FDA-Public Use
  Company Number: None

PATIENT
  Age: 61 Year
  Weight: 73.9363 kg

DRUGS (1)
  1. LIPITOR [Suspect]
     Indication: BLOOD CHOLESTEROL INCREASED
     Dosage: 20 MG ONCE PER DAY PO
     Route: 048
     Dates: start: 20051001, end: 20080301

REACTIONS (9)
  - ARTHRITIS [None]
  - ASTHENIA [None]
  - CARPAL TUNNEL SYNDROME [None]
  - DYSSTASIA [None]
  - MUSCLE ATROPHY [None]
  - MUSCLE INJURY [None]
  - MUSCLE SWELLING [None]
  - OEDEMA PERIPHERAL [None]
  - PAIN [None]
